FAERS Safety Report 13530064 (Version 1)
Quarter: 2017Q2

REPORT INFORMATION
  Report Type: Spontaneous
  Country: US (occurrence: US)
  Receive Date: 20170509
  Receipt Date: 20170509
  Transmission Date: 20170830
  Serious: No
  Sender: FDA-Public Use
  Company Number: US-UCBSA-2016010149

PATIENT
  Age: 63 Year
  Sex: Male
  Weight: 92.97 kg

DRUGS (9)
  1. NEUPRO [Suspect]
     Active Substance: ROTIGOTINE
     Dosage: 6 MG, DAILY
     Route: 062
     Dates: start: 2016, end: 2016
  2. NEUPRO [Suspect]
     Active Substance: ROTIGOTINE
     Dosage: 4 MG
     Route: 062
     Dates: start: 2016, end: 2016
  3. MELOXICAM. [Concomitant]
     Active Substance: MELOXICAM
     Indication: MUSCULOSKELETAL PAIN
  4. KLONOPIN [Concomitant]
     Active Substance: CLONAZEPAM
     Indication: PRODUCT USED FOR UNKNOWN INDICATION
     Dosage: 25 MG, 4X/DAY (QID)
  5. NEUPRO [Suspect]
     Active Substance: ROTIGOTINE
     Dosage: 5MG DAILY (STRENGTH: 4 PLUS 1 MG)
     Route: 062
     Dates: start: 20160313
  6. NEUPRO [Suspect]
     Active Substance: ROTIGOTINE
     Indication: PARKINSON^S DISEASE
     Dosage: 1MG DAILY AND WAS INCREASED BY 1MG EVERY WEEK
     Route: 062
     Dates: start: 201601, end: 201601
  7. MELOXICAM. [Concomitant]
     Active Substance: MELOXICAM
     Indication: MUSCULOSKELETAL PAIN
     Dosage: UNK
  8. TRAZODONE [Concomitant]
     Active Substance: TRAZODONE HYDROCHLORIDE
     Indication: PRODUCT USED FOR UNKNOWN INDICATION
     Dosage: 50 MG, ONCE DAILY (QD), AT BEDTIME
  9. VALIUM [Concomitant]
     Active Substance: DIAZEPAM
     Indication: PRODUCT USED FOR UNKNOWN INDICATION
     Dosage: 5 MG HALF TAB PRN

REACTIONS (9)
  - Sedation [Recovered/Resolved]
  - Application site irritation [Not Recovered/Not Resolved]
  - Somnolence [Recovered/Resolved]
  - Tremor [Not Recovered/Not Resolved]
  - Bladder discomfort [Not Recovered/Not Resolved]
  - Application site swelling [Not Recovered/Not Resolved]
  - Sleep apnoea syndrome [Not Recovered/Not Resolved]
  - Application site erythema [Not Recovered/Not Resolved]
  - Multiple system atrophy [Not Recovered/Not Resolved]

NARRATIVE: CASE EVENT DATE: 2016
